FAERS Safety Report 10014399 (Version 2)
Quarter: 2014Q2

REPORT INFORMATION
  Report Type: Spontaneous
  Country: US (occurrence: US)
  Receive Date: 20140317
  Receipt Date: 20140506
  Transmission Date: 20141212
  Serious: No
  Sender: FDA-Public Use
  Company Number: US-009507513-1403USA006261

PATIENT
  Age: 19 Year
  Sex: Female
  Weight: 133.33 kg

DRUGS (1)
  1. IMPLANON [Suspect]
     Dosage: 1 IMPLANT, FOR THREE YEARS, LEFT ARM
     Route: 059
     Dates: start: 201304

REACTIONS (5)
  - Haemorrhage [Unknown]
  - Device difficult to use [Not Recovered/Not Resolved]
  - Device difficult to use [Not Recovered/Not Resolved]
  - Implant site fibrosis [Unknown]
  - Medical device complication [Not Recovered/Not Resolved]
